FAERS Safety Report 9356981 (Version 3)
Quarter: 2013Q3

REPORT INFORMATION
  Report Type: Spontaneous
  Country: US (occurrence: US)
  Receive Date: 20130620
  Receipt Date: 20130823
  Transmission Date: 20140515
  Serious: Yes (Hospitalization, Disabling)
  Sender: FDA-Public Use
  Company Number: US-009507513-1306USA007826

PATIENT
  Sex: Female
  Weight: 117.91 kg

DRUGS (3)
  1. NEXPLANON [Suspect]
     Dosage: UNK
     Route: 059
     Dates: start: 20130531, end: 20130702
  2. ANTIVERT (MECLIZINE HYDROCHLORIDE) [Concomitant]
  3. FIORICET [Concomitant]

REACTIONS (5)
  - Muscle spasms [Unknown]
  - Nausea [Recovered/Resolved]
  - Headache [Recovered/Resolved]
  - Menorrhagia [Recovered/Resolved]
  - Vomiting [Recovered/Resolved]
